FAERS Safety Report 21274249 (Version 1)
Quarter: 2022Q3

REPORT INFORMATION
  Report Type: Spontaneous
  Country: RU (occurrence: None)
  Receive Date: 20220831
  Receipt Date: 20220831
  Transmission Date: 20221027
  Serious: Yes (Other)
  Sender: FDA-Public Use
  Company Number: 2022A300061

PATIENT
  Age: 31747 Day
  Sex: Male
  Weight: 50 kg

DRUGS (7)
  1. TICAGRELOR [Suspect]
     Active Substance: TICAGRELOR
     Indication: Acute myocardial infarction
     Dosage: 180.0MG UNKNOWN
     Route: 048
  2. TICAGRELOR [Suspect]
     Active Substance: TICAGRELOR
     Indication: Acute myocardial infarction
     Dosage: 90.0MG UNKNOWN
     Route: 048
     Dates: start: 20220816
  3. HEPARIN [Concomitant]
     Active Substance: HEPARIN SODIUM
     Dosage: 25.000, 1000 UNITS PER HOUR
     Route: 042
  4. ASPIRIN [Concomitant]
     Active Substance: ASPIRIN
  5. LOSARTAN [Concomitant]
     Active Substance: LOSARTAN
     Dosage: 25.0MG UNKNOWN
  6. LASIX [Concomitant]
     Active Substance: FUROSEMIDE
  7. SPIRONOLACTONE [Concomitant]
     Active Substance: SPIRONOLACTONE

REACTIONS (3)
  - Acute psychosis [Unknown]
  - Urethral injury [Unknown]
  - Haematuria [Unknown]

NARRATIVE: CASE EVENT DATE: 20220817
